FAERS Safety Report 12371117 (Version 1)
Quarter: 2016Q2

REPORT INFORMATION
  Report Type: Report from Study
  Country: US (occurrence: US)
  Receive Date: 20160516
  Receipt Date: 20160516
  Transmission Date: 20160815
  Serious: Yes (Life-Threatening, Other)
  Sender: FDA-Public Use
  Company Number: US-ROCHE-1757465

PATIENT
  Age: 62 Year
  Sex: Female

DRUGS (3)
  1. IRINOTECAN [Suspect]
     Active Substance: IRINOTECAN
     Indication: COLORECTAL CANCER METASTATIC
     Dosage: TOTAL DOSE ADMINISTERED THIS COURSE: 577 MG
     Route: 065
     Dates: start: 20160225, end: 20160317
  2. VEMURAFENIB [Suspect]
     Active Substance: VEMURAFENIB
     Indication: COLORECTAL CANCER METASTATIC
     Dosage: TOTAL DOSE ADMINISTERED THIS COURSE: 53760 MG
     Route: 048
     Dates: start: 20150225, end: 20150310
  3. CETUXIMAB [Suspect]
     Active Substance: CETUXIMAB
     Indication: COLORECTAL CANCER METASTATIC
     Dosage: TOTAL DOSE ADMINISTERED THIS COURSE: 1931MG
     Route: 065
     Dates: start: 20160225, end: 20160317

REACTIONS (3)
  - Neutrophil count decreased [Recovered/Resolved]
  - Fatigue [Recovered/Resolved]
  - Anaemia [Recovered/Resolved]

NARRATIVE: CASE EVENT DATE: 20160303
